FAERS Safety Report 6831053-9 (Version None)
Quarter: 2010Q2

REPORT INFORMATION
  Report Type: 
  Country: None (occurrence: None)
  Receive Date: 20100520
  Receipt Date: 20090506
  Transmission Date: 20101027
  Serious: Yes (Other)
  Sender: FDA-Public Use
  Company Number: 2009210299

PATIENT
  Age: 59 Year
  Sex: Female
  Weight: 97.5 kg

DRUGS (5)
  1. PROVERA [Suspect]
     Indication: HORMONE REPLACEMENT THERAPY
     Dosage: 5 MG
     Dates: start: 19940801, end: 19950801
  2. PREMARIN [Suspect]
     Indication: HORMONE REPLACEMENT THERAPY
     Dosage: 0.625 MG
     Dates: start: 19940801, end: 19950801
  3. PREMPRO [Suspect]
     Indication: HORMONE REPLACEMENT THERAPY
     Dates: start: 19950801, end: 20020901
  4. PREMPHASE (PREMARIN;CYCRIN 14/14) [Suspect]
     Indication: HORMONE REPLACEMENT THERAPY
     Dates: start: 20020901, end: 20021101
  5. METOPROLOL SUCCINATE [Concomitant]

REACTIONS (3)
  - BREAST CANCER [None]
  - GALLBLADDER DISORDER [None]
  - PULMONARY EMBOLISM [None]
